FAERS Safety Report 7355033-2 (Version None)
Quarter: 2011Q1

REPORT INFORMATION
  Report Type: 
  Country: None (occurrence: None)
  Receive Date: 20110307
  Receipt Date: 20110219
  Transmission Date: 20110831
  Serious: Yes (Other)
  Sender: FDA-Public Use
  Company Number: 2011000324

PATIENT
  Age: 77 Year
  Sex: Male
  Weight: 85.8206 kg

DRUGS (15)
  1. GEMZAR [Concomitant]
  2. PROCHLORPERAZINE MALEATE [Concomitant]
  3. ANUSOL HC [Concomitant]
  4. TARCEVA [Suspect]
     Indication: PANCREATIC CARCINOMA
     Dosage: 1000 MG, QD, DAYS 9-20), ORAL; 100 MG, EOD, ORAL
     Route: 048
     Dates: start: 20110202, end: 20110214
  5. TARCEVA [Suspect]
     Indication: PANCREATIC CARCINOMA
     Dosage: 1000 MG, QD, DAYS 9-20), ORAL; 100 MG, EOD, ORAL
     Route: 048
     Dates: start: 20110103, end: 20110117
  6. NITROGLYCERIN [Concomitant]
  7. TAMSULOSIN HCL [Concomitant]
  8. LUNESTA [Concomitant]
  9. BAZA ANTIFUNGAL (MICONAZOLE NITRATE) [Concomitant]
  10. CARDURA [Concomitant]
  11. LISINOPRIL [Concomitant]
  12. ZANTAC [Concomitant]
  13. METOPROLOL TARTRATE [Concomitant]
  14. ZOFRAN [Concomitant]
  15. REGLAN [Concomitant]

REACTIONS (6)
  - DEHYDRATION [None]
  - OEDEMA PERIPHERAL [None]
  - PYREXIA [None]
  - HYPOTENSION [None]
  - DIZZINESS [None]
  - GAIT DISTURBANCE [None]
